FAERS Safety Report 25123249 (Version 1)
Quarter: 2025Q1

REPORT INFORMATION
  Report Type: Spontaneous
  Country: US (occurrence: US)
  Receive Date: 20250326
  Receipt Date: 20250326
  Transmission Date: 20250409
  Serious: Yes (Other)
  Sender: APOTEX
  Company Number: US-APOTEX-2025AP003674

PATIENT
  Age: 36 Year
  Sex: Male

DRUGS (8)
  1. CYCLOSPORINE [Suspect]
     Active Substance: CYCLOSPORINE
     Indication: Systemic lupus erythematosus
     Route: 065
  2. CYCLOSPORINE [Suspect]
     Active Substance: CYCLOSPORINE
     Dosage: 200 MILLIGRAM, BID
     Route: 065
     Dates: start: 2019
  3. BELIMUMAB [Concomitant]
     Active Substance: BELIMUMAB
     Indication: Alopecia
     Route: 065
  4. MYCOPHENOLATE MOFETIL [Concomitant]
     Active Substance: MYCOPHENOLATE MOFETIL
     Indication: Alopecia
     Route: 065
  5. MINOXIDIL [Concomitant]
     Active Substance: MINOXIDIL
     Indication: Alopecia
     Route: 061
  6. THALIDOMIDE [Concomitant]
     Active Substance: THALIDOMIDE
     Indication: Alopecia
  7. WARFARIN [Concomitant]
     Active Substance: WARFARIN
     Indication: Alopecia
     Route: 065
     Dates: end: 201902
  8. CLOBETASOL [Concomitant]
     Active Substance: CLOBETASOL
     Indication: Alopecia
     Route: 065

REACTIONS (1)
  - Thrombocytopenia [Unknown]
